FAERS Safety Report 15168369 (Version 2)
Quarter: 2018Q4

REPORT INFORMATION
  Report Type: Spontaneous
  Country: DE (occurrence: DE)
  Receive Date: 20180719
  Receipt Date: 20181106
  Transmission Date: 20190204
  Serious: Yes (Other)
  Sender: FDA-Public Use
  Company Number: PHHY2016DE187005

PATIENT
  Age: 65 Year
  Sex: Female
  Weight: 90.3 kg

DRUGS (6)
  1. LETROZOL [Concomitant]
     Active Substance: LETROZOLE
     Indication: BREAST CANCER
     Dosage: 2.5 MG, UNK
     Route: 048
  2. PACLITAXEL. [Suspect]
     Active Substance: PACLITAXEL
     Indication: BREAST CANCER
     Dosage: 176 MG, Q4W
     Route: 042
     Dates: start: 20160331
  3. BEVACIZUMAB. [Suspect]
     Active Substance: BEVACIZUMAB
     Dosage: 900 MG, Q2W
     Route: 042
     Dates: start: 20160829
  4. BEVACIZUMAB. [Suspect]
     Active Substance: BEVACIZUMAB
     Dosage: 900 MG, UNK
     Route: 042
     Dates: start: 20160425, end: 20160425
  5. BEVACIZUMAB. [Suspect]
     Active Substance: BEVACIZUMAB
     Dosage: 900 MG, UNK
     Route: 042
     Dates: start: 20160829, end: 20160829
  6. BEVACIZUMAB. [Suspect]
     Active Substance: BEVACIZUMAB
     Indication: BREAST CANCER
     Dosage: 900 MG, Q2W
     Route: 042
     Dates: start: 20160425

REACTIONS (7)
  - Proteinuria [Not Recovered/Not Resolved]
  - Urine analysis abnormal [Recovered/Resolved]
  - Anaemia [Recovered/Resolved]
  - Ascites [Unknown]
  - Haemoglobin abnormal [Unknown]
  - Anaemia [Recovered/Resolved]
  - Urinary tract infection [Recovered/Resolved]

NARRATIVE: CASE EVENT DATE: 20160613
